FAERS Safety Report 10058553 (Version 1)
Quarter: 2014Q2

REPORT INFORMATION
  Report Type: Spontaneous
  Country: GB (occurrence: None)
  Receive Date: 20140402
  Receipt Date: 20140402
  Transmission Date: 20141212
  Serious: Yes (Death)
  Sender: FDA-Public Use
  Company Number: FK201400992

PATIENT
  Age: 51 Year
  Sex: Male
  Weight: 68 kg

DRUGS (3)
  1. DIPHENHYDRAMINE [Suspect]
     Indication: COMPLETED SUICIDE
     Route: 048
  2. NICOTINE [Suspect]
     Indication: COMPLETED SUICIDE
     Dosage: HOMEMADE NICOTINE PATCH
     Route: 061
  3. TETRAZEPAM (TETRAZEPAM) [Concomitant]

REACTIONS (3)
  - Completed suicide [None]
  - Poisoning [None]
  - Toxicity to various agents [None]
